FAERS Safety Report 14557329 (Version 1)
Quarter: 2018Q1

REPORT INFORMATION
  Report Type: Report from Study
  Country: US (occurrence: US)
  Receive Date: 20180221
  Receipt Date: 20180221
  Transmission Date: 20180509
  Serious: Yes (Other)
  Sender: FDA-Public Use
  Company Number: US-TESARO, INC-US-2017TSO04506

PATIENT

DRUGS (13)
  1. NORCO [Concomitant]
     Active Substance: ACETAMINOPHEN\HYDROCODONE BITARTRATE
     Indication: PRODUCT USED FOR UNKNOWN INDICATION
     Dosage: 1 DF (7.4/325 MG), Q4HRS, PRN
     Route: 048
  2. COLACE [Concomitant]
     Active Substance: DOCUSATE SODIUM
     Indication: CONSTIPATION
     Dosage: 100 MG, BID PRN
     Route: 048
  3. TYLENOL [Concomitant]
     Active Substance: ACETAMINOPHEN
     Indication: PRODUCT USED FOR UNKNOWN INDICATION
     Dosage: 2 DF, Q6HRS
     Route: 048
  4. PROBIOTIC                          /06395501/ [Concomitant]
     Active Substance: BIFIDOBACTERIUM ANIMALIS LACTIS
     Indication: PRODUCT USED FOR UNKNOWN INDICATION
     Dosage: 1 DF, QD
     Route: 048
  5. ZEJULA [Suspect]
     Active Substance: NIRAPARIB
     Indication: OVARIAN CANCER
     Dosage: 300 MG, QD
     Route: 048
     Dates: start: 20171128
  6. NEURONTIN [Concomitant]
     Active Substance: GABAPENTIN
     Indication: PRODUCT USED FOR UNKNOWN INDICATION
     Dosage: 300 MG, TID
     Route: 048
  7. ZEJULA [Suspect]
     Active Substance: NIRAPARIB
     Dosage: 100 MG, QD
     Route: 048
     Dates: start: 20171217, end: 20180116
  8. ZOFRAN [Concomitant]
     Active Substance: ONDANSETRON HYDROCHLORIDE
     Indication: NAUSEA
     Dosage: 8 MG, Q8HRS, PRN
     Route: 048
  9. ELIQUIS [Concomitant]
     Active Substance: APIXABAN
     Indication: PRODUCT USED FOR UNKNOWN INDICATION
     Dosage: 5 MG, BID
     Route: 048
  10. VANCOCIN HYDROCHLORIDE [Concomitant]
     Active Substance: VANCOMYCIN HYDROCHLORIDE
     Indication: PRODUCT USED FOR UNKNOWN INDICATION
     Dosage: 1 DF, QID
     Route: 048
  11. ZOLOFT [Concomitant]
     Active Substance: SERTRALINE HYDROCHLORIDE
     Indication: PRODUCT USED FOR UNKNOWN INDICATION
     Dosage: 50 MG, TID
     Route: 048
  12. COMPAZINE                          /00013302/ [Concomitant]
     Active Substance: PROCHLORPERAZINE EDISYLATE
     Indication: NAUSEA
     Dosage: 10 MG, Q6HRS, PRN
     Route: 048
  13. B COMPLEX                          /00322001/ [Concomitant]
     Active Substance: CALCIUM PANTOTHENATE\CYANOCOBALAMIN\NIACINAMIDE\PYRIDOXINE HYDROCHLORIDE\RIBOFLAVIN\THIAMINE HYDROCHLORIDE
     Indication: VITAMIN SUPPLEMENTATION
     Dosage: 1 DF, QD
     Route: 048

REACTIONS (27)
  - Loss of personal independence in daily activities [Recovering/Resolving]
  - Macrocytosis [Unknown]
  - White blood cell count increased [Unknown]
  - Neutrophil count decreased [Unknown]
  - Insomnia [Recovering/Resolving]
  - Platelet count decreased [Not Recovered/Not Resolved]
  - Asthenia [Recovering/Resolving]
  - Gait disturbance [Recovering/Resolving]
  - Eosinophil percentage increased [Unknown]
  - Monocyte percentage increased [Unknown]
  - Platelet anisocytosis [Unknown]
  - Monocyte count increased [Unknown]
  - Nucleated red cells [Unknown]
  - Vomiting [Recovering/Resolving]
  - Haematocrit decreased [Unknown]
  - Muscular weakness [Recovering/Resolving]
  - Poikilocytosis [Unknown]
  - Haemoglobin decreased [Unknown]
  - Basophil percentage increased [Unknown]
  - Red cell distribution width increased [Unknown]
  - Decreased appetite [Unknown]
  - Red blood cell count decreased [Unknown]
  - Nausea [Recovering/Resolving]
  - Failure to thrive [Recovering/Resolving]
  - Platelet count increased [Unknown]
  - Granulocyte count increased [Unknown]
  - Neutrophil percentage decreased [Unknown]

NARRATIVE: CASE EVENT DATE: 20180116
